FAERS Safety Report 23365276 (Version 1)
Quarter: 2024Q1

REPORT INFORMATION
  Report Type: Spontaneous
  Country: DE (occurrence: DE)
  Receive Date: 20240104
  Receipt Date: 20240104
  Transmission Date: 20240409
  Serious: Yes (Hospitalization, Other)
  Sender: FDA-Public Use
  Company Number: DE-CADRBFARM-2023324921

PATIENT
  Age: 21 Year
  Sex: Male
  Weight: 95 kg

DRUGS (7)
  1. ESCITALOPRAM [Suspect]
     Active Substance: ESCITALOPRAM OXALATE
     Indication: Depression
     Dosage: UNK, START WITH 10 MG, THEN 20 MG
     Route: 048
     Dates: start: 20191001, end: 20200401
  2. ESCITALOPRAM [Suspect]
     Active Substance: ESCITALOPRAM OXALATE
     Indication: Irritability
  3. ESCITALOPRAM [Suspect]
     Active Substance: ESCITALOPRAM OXALATE
     Indication: Stress
  4. ESCITALOPRAM [Suspect]
     Active Substance: ESCITALOPRAM OXALATE
     Indication: Restlessness
  5. ESCITALOPRAM [Suspect]
     Active Substance: ESCITALOPRAM OXALATE
     Indication: Anxiety
  6. ESCITALOPRAM [Suspect]
     Active Substance: ESCITALOPRAM OXALATE
     Indication: Obsessive-compulsive personality disorder
  7. ESCITALOPRAM [Suspect]
     Active Substance: ESCITALOPRAM OXALATE
     Indication: Social anxiety disorder

REACTIONS (28)
  - Suicidal ideation [Unknown]
  - Erectile dysfunction [Not Recovered/Not Resolved]
  - Sexual dysfunction [Not Recovered/Not Resolved]
  - Self esteem decreased [Not Recovered/Not Resolved]
  - Apathy [Recovered/Resolved with Sequelae]
  - Feeling abnormal [Not Recovered/Not Resolved]
  - Pain in extremity [Not Recovered/Not Resolved]
  - Insomnia [Unknown]
  - Psychomotor hyperactivity [Unknown]
  - Muscular weakness [Recovered/Resolved with Sequelae]
  - Irritability [Unknown]
  - Testicular atrophy [Recovered/Resolved with Sequelae]
  - Withdrawal syndrome [Unknown]
  - Genital anaesthesia [Recovered/Resolved with Sequelae]
  - Fatigue [Recovered/Resolved with Sequelae]
  - Burning sensation [Not Recovered/Not Resolved]
  - Emotional poverty [Recovered/Resolved with Sequelae]
  - Hypoaesthesia [Recovered/Resolved with Sequelae]
  - Dizziness [Unknown]
  - Anhedonia [Recovered/Resolved with Sequelae]
  - Restlessness [Unknown]
  - Loss of libido [Recovered/Resolved with Sequelae]
  - Genital atrophy [Not Recovered/Not Resolved]
  - Decreased interest [Recovered/Resolved with Sequelae]
  - Condition aggravated [Unknown]
  - Nausea [Unknown]
  - Electric shock sensation [Unknown]
  - Drug ineffective [Unknown]

NARRATIVE: CASE EVENT DATE: 20190101
